FAERS Safety Report 17527217 (Version 1)
Quarter: 2020Q1

REPORT INFORMATION
  Report Type: Spontaneous
  Country: US (occurrence: US)
  Receive Date: 20200311
  Receipt Date: 20200311
  Transmission Date: 20200409
  Serious: No
  Sender: FDA-Public Use
  Company Number: US-PFIZER INC-2020105409

PATIENT

DRUGS (13)
  1. TRAZODONE [Suspect]
     Active Substance: TRAZODONE HYDROCHLORIDE
     Dosage: UNK
  2. APRISO [Concomitant]
     Active Substance: MESALAMINE
  3. SYNTHROID [Concomitant]
     Active Substance: LEVOTHYROXINE SODIUM
  4. MORPHINE SULFATE. [Suspect]
     Active Substance: MORPHINE SULFATE
     Dosage: UNK
  5. CODEINE [Suspect]
     Active Substance: CODEINE
     Dosage: UNK
  6. COMPAZINE [Suspect]
     Active Substance: PROCHLORPERAZINE MALEATE
     Dosage: UNK
  7. INFLECTRA [Concomitant]
     Active Substance: INFLIXIMAB-DYYB
     Indication: CROHN^S DISEASE
     Dosage: 7 100MG/20ML/700 MG IN NS 250 CC 10 OVER 2 1/2 HOURS Q (EVERY) 8 WEEKS
     Route: 042
  8. METOPROLOL. [Concomitant]
     Active Substance: METOPROLOL
  9. PAXIL [PIROXICAM] [Concomitant]
     Active Substance: PIROXICAM
  10. NSAIDS [Suspect]
     Active Substance: UNSPECIFIED INGREDIENT
  11. LASIX [Concomitant]
     Active Substance: FUROSEMIDE
  12. NEXIUM [Concomitant]
     Active Substance: ESOMEPRAZOLE MAGNESIUM
  13. GABAPENTIN. [Concomitant]
     Active Substance: GABAPENTIN

REACTIONS (1)
  - Drug hypersensitivity [Unknown]
